FAERS Safety Report 7347123-5 (Version None)
Quarter: 2011Q1

REPORT INFORMATION
  Report Type: 
  Country: None (occurrence: None)
  Receive Date: 20110311
  Receipt Date: 20110228
  Transmission Date: 20110831
  Serious: Yes (Hospitalization)
  Sender: FDA-Public Use
  Company Number: PHHY2011IT17089

PATIENT
  Sex: Female

DRUGS (2)
  1. MIRTAZAPINE [Suspect]
  2. ZOLPIDEM [Suspect]

REACTIONS (1)
  - COMA [None]
